FAERS Safety Report 5820233-7 (Version None)
Quarter: 2008Q3

REPORT INFORMATION
  Report Type: 
  Country: None (occurrence: None)
  Receive Date: 20080724
  Receipt Date: 20080718
  Transmission Date: 20090109
  Serious: Yes (Hospitalization)
  Sender: FDA-Public Use
  Company Number: JP-BRISTOL-MYERS SQUIBB COMPANY-13881792

PATIENT
  Age: 35 Year
  Sex: Male

DRUGS (2)
  1. EFAVIRENZ [Suspect]
     Indication: HIV INFECTION
     Dosage: STOPPED ON 09MAR07. RESTARTED ON 28MAR07 .DURATION THERAPY = 1734 DAYS
     Route: 048
     Dates: start: 20020610
  2. ABACAVIR SULFATE LAMIVUDINE AND ZIDOVUDINE [Suspect]
     Indication: HIV INFECTION
     Route: 048
     Dates: start: 20060308, end: 20070309

REACTIONS (2)
  - CARDIAC FAILURE [None]
  - DYSPNOEA [None]
